FAERS Safety Report 12601159 (Version 1)
Quarter: 2016Q3

REPORT INFORMATION
  Report Type: Spontaneous
  Country: FR (occurrence: FR)
  Receive Date: 20160728
  Receipt Date: 20160728
  Transmission Date: 20161109
  Serious: Yes (Hospitalization)
  Sender: FDA-Public Use
  Company Number: FR-ASTRAZENECA-2016SE80034

PATIENT
  Age: 962 Month
  Sex: Female

DRUGS (7)
  1. KARDEGIC [Suspect]
     Active Substance: ASPIRIN LYSINE
     Route: 048
     Dates: start: 201605, end: 20160708
  2. EUPRESSYL [Suspect]
     Active Substance: URAPIDIL
     Route: 048
     Dates: start: 201605, end: 20160708
  3. VALSARTAN. [Suspect]
     Active Substance: VALSARTAN
     Route: 048
     Dates: start: 201605, end: 20160708
  4. BRILIQUE [Suspect]
     Active Substance: TICAGRELOR
     Route: 048
     Dates: start: 201605, end: 20160708
  5. BISOPROLOL [Suspect]
     Active Substance: BISOPROLOL
     Route: 048
     Dates: start: 201605, end: 20160708
  6. AMLOR [Suspect]
     Active Substance: AMLODIPINE BESYLATE
     Route: 048
     Dates: start: 201605, end: 20160708
  7. ATORVASTATINE [Suspect]
     Active Substance: ATORVASTATIN
     Route: 048
     Dates: start: 201605, end: 20160708

REACTIONS (1)
  - Drug reaction with eosinophilia and systemic symptoms [Not Recovered/Not Resolved]

NARRATIVE: CASE EVENT DATE: 201606
